FAERS Safety Report 16300693 (Version 1)
Quarter: 2019Q2

REPORT INFORMATION
  Report Type: Spontaneous
  Country: IL (occurrence: IL)
  Receive Date: 20190510
  Receipt Date: 20190510
  Transmission Date: 20190711
  Serious: Yes (Other)
  Sender: FDA-Public Use
  Company Number: IL-JNJFOC-20190508124

PATIENT

DRUGS (1)
  1. QUIXIL [Suspect]
     Active Substance: FIBRINOGEN HUMAN\THROMBIN HUMAN
     Indication: EPISTAXIS
     Route: 061

REACTIONS (4)
  - Product use in unapproved indication [Unknown]
  - Rhinorrhoea [Unknown]
  - Off label use [Unknown]
  - Haemorrhage [Unknown]
